FAERS Safety Report 9293801 (Version 2)
Quarter: 2013Q4

REPORT INFORMATION
  Report Type: Report from Study
  Country: AU (occurrence: AU)
  Receive Date: 20130516
  Receipt Date: 20131216
  Transmission Date: 20140711
  Serious: Yes (Other)
  Sender: FDA-Public Use
  Company Number: AU-JNJFOC-20130506626

PATIENT
  Age: 37 Year
  Sex: Female

DRUGS (2)
  1. REMICADE [Suspect]
     Indication: CROHN^S DISEASE
     Route: 042
     Dates: start: 201102
  2. IMURAN [Concomitant]
     Route: 065

REACTIONS (3)
  - Fistula [Unknown]
  - Caesarean section [Unknown]
  - Exposure during pregnancy [Recovered/Resolved]
